FAERS Safety Report 5859104-9 (Version None)
Quarter: 2008Q3

REPORT INFORMATION
  Report Type: 
  Country: None (occurrence: None)
  Receive Date: 20080825
  Receipt Date: 20080808
  Transmission Date: 20090109
  Serious: Yes (Life-Threatening)
  Sender: FDA-Public Use
  Company Number: DSA_32327_2008

PATIENT
  Sex: Female

DRUGS (14)
  1. DILTIAZEM [Suspect]
     Indication: DRUG USE FOR UNKNOWN INDICATION
     Dosage: (120 MG BID ORAL), (60 MG BID ORAL)
     Route: 048
     Dates: start: 20080712, end: 20080713
  2. DILTIAZEM [Suspect]
     Indication: DRUG USE FOR UNKNOWN INDICATION
     Dosage: (120 MG BID ORAL), (60 MG BID ORAL)
     Route: 048
     Dates: start: 20080713, end: 20080714
  3. DILTIAZEM [Suspect]
     Indication: DRUG USE FOR UNKNOWN INDICATION
     Dosage: (5 MG INTRAVENOUS DRIP)
     Route: 041
     Dates: start: 20080713, end: 20080713
  4. DIGOXIN [Suspect]
     Indication: ATRIAL FIBRILLATION
     Dosage: (0.5 MG QD INTRAVENOUS BOLUS)
     Route: 040
     Dates: start: 20080709, end: 20080713
  5. DIGOXIN [Suspect]
     Indication: ATRIAL FLUTTER
     Dosage: (0.5 MG QD INTRAVENOUS BOLUS)
     Route: 040
     Dates: start: 20080709, end: 20080713
  6. VANCOMYCIN HCL [Concomitant]
  7. NEXIUM IV [Concomitant]
  8. ASPIRIN [Concomitant]
  9. ENOXAPARIN SODIUM [Concomitant]
  10. TAZOBACTAM [Concomitant]
  11. DOBUTAMINE HCL [Concomitant]
  12. MERONEM /01250501/ [Concomitant]
  13. NORADRENALINE /00127501/ [Concomitant]
  14. LASIX [Concomitant]

REACTIONS (15)
  - ATRIOVENTRICULAR BLOCK [None]
  - BILE DUCT STONE [None]
  - BLOOD CREATININE INCREASED [None]
  - BLOOD MAGNESIUM INCREASED [None]
  - BRADYCARDIA [None]
  - CARDIAC ARREST [None]
  - CARDIAC FAILURE [None]
  - CARDIOACTIVE DRUG LEVEL INCREASED [None]
  - DRUG INTERACTION [None]
  - HYPERKALAEMIA [None]
  - ILEUS PARALYTIC [None]
  - LACTIC ACIDOSIS [None]
  - OVERDOSE [None]
  - THERAPEUTIC AGENT TOXICITY [None]
  - VENTRICULAR TACHYCARDIA [None]
